FAERS Safety Report 9788497 (Version 1)
Quarter: 2013Q4

REPORT INFORMATION
  Report Type: Spontaneous
  Country: CO (occurrence: CO)
  Receive Date: 20131230
  Receipt Date: 20131230
  Transmission Date: 20140711
  Serious: Yes (Other)
  Sender: FDA-Public Use
  Company Number: CO-BAYER-2013-156604

PATIENT
  Sex: Female

DRUGS (1)
  1. KOGENATE FS [Suspect]
     Indication: HAEMOPHILIA

REACTIONS (1)
  - Brain oedema [None]
